FAERS Safety Report 14665164 (Version 1)
Quarter: 2018Q1

REPORT INFORMATION
  Report Type: Spontaneous
  Country: US (occurrence: US)
  Receive Date: 20180320
  Receipt Date: 20180320
  Transmission Date: 20180509
  Serious: No
  Sender: FDA-Public Use
  Company Number: None

PATIENT
  Age: 46 Year

DRUGS (1)
  1. DUEXIS [Suspect]
     Active Substance: FAMOTIDINE\IBUPROFEN
     Route: 048
     Dates: end: 20180313

REACTIONS (2)
  - Gastric ulcer [None]
  - Hyperchlorhydria [None]

NARRATIVE: CASE EVENT DATE: 20180320
